FAERS Safety Report 12918353 (Version 4)
Quarter: 2017Q2

REPORT INFORMATION
  Report Type: Report from Study
  Country: US (occurrence: US)
  Receive Date: 20161107
  Receipt Date: 20170516
  Transmission Date: 20170830
  Serious: Yes (Other)
  Sender: FDA-Public Use
  Company Number: US-GILEAD-2016-0241854

PATIENT
  Age: 52 Year
  Sex: Female

DRUGS (2)
  1. AMBRISENTAN [Suspect]
     Active Substance: AMBRISENTAN
     Indication: PRODUCT USED FOR UNKNOWN INDICATION
     Dosage: 10 MG, QD
     Route: 065
     Dates: start: 20131213
  2. AMBRISENTAN [Suspect]
     Active Substance: AMBRISENTAN
     Dosage: 5 MG, UNK
     Route: 065

REACTIONS (5)
  - Pain [Not Recovered/Not Resolved]
  - Renal surgery [Unknown]
  - Sepsis [Unknown]
  - Nephrolithiasis [Unknown]
  - Malaise [Unknown]

NARRATIVE: CASE EVENT DATE: 201701
